FAERS Safety Report 7459060-6 (Version None)
Quarter: 2011Q2

REPORT INFORMATION
  Report Type: 
  Country: None (occurrence: None)
  Receive Date: 20110505
  Receipt Date: 20110427
  Transmission Date: 20111010
  Serious: No
  Sender: FDA-Public Use
  Company Number: US-BIOGENIDEC-2011BI003418

PATIENT
  Sex: Female

DRUGS (1)
  1. TYSABRI [Suspect]
     Indication: MULTIPLE SCLEROSIS
     Route: 042
     Dates: start: 20090224

REACTIONS (7)
  - GAIT DISTURBANCE [None]
  - MUSCLE SPASTICITY [None]
  - PAIN [None]
  - MUSCLE SPASMS [None]
  - NEURALGIA [None]
  - HEADACHE [None]
  - FATIGUE [None]
